FAERS Safety Report 23369232 (Version 1)
Quarter: 2024Q1

REPORT INFORMATION
  Report Type: Spontaneous
  Country: US (occurrence: US)
  Receive Date: 20240105
  Receipt Date: 20240105
  Transmission Date: 20240409
  Serious: Yes (Other)
  Sender: FDA-Public Use
  Company Number: US-AMGEN-USASP2024000665

PATIENT
  Age: 56 Year
  Sex: Female

DRUGS (1)
  1. TAVNEOS [Suspect]
     Active Substance: AVACOPAN
     Indication: Granulomatosis with polyangiitis
     Dosage: 30 MILLIGRAM, BID ( TAKE 3 CAPSULES (30 MG) BY MOUTH TWICE DAILY WITH FOOD )
     Route: 048
     Dates: start: 20231011

REACTIONS (1)
  - Blindness unilateral [Unknown]
